FAERS Safety Report 7268654-2 (Version None)
Quarter: 2011Q1

REPORT INFORMATION
  Report Type: 
  Country: None (occurrence: None)
  Receive Date: 20110121
  Receipt Date: 20110106
  Transmission Date: 20110831
  Serious: Yes (Hospitalization, Other)
  Sender: FDA-Public Use
  Company Number: AUR-APL-2011-00214

PATIENT
  Age: 41 Year
  Sex: Male

DRUGS (10)
  1. PIPAMPERONE [Suspect]
     Indication: SCHIZOPHRENIA
     Dosage: 160MG -DAILY
  2. METHADONE [Suspect]
  3. COCAINE [Suspect]
  4. DIAZEPAM [Suspect]
     Indication: SCHIZOPHRENIA
     Dosage: 10MG - DAILY -
  5. RISPERIDONE [Suspect]
     Indication: SCHIZOPHRENIA
     Dosage: 6MG - DAILY
  6. CLOZAPINE [Suspect]
     Indication: SCHIZOPHRENIA
     Dosage: 500-600MG - DAILY -
  7. LORAZEPAM [Suspect]
     Indication: SCHIZOPHRENIA
     Dosage: 4 MG-DAILY
  8. CANNABIS [Suspect]
  9. IRON [Suspect]
  10. HALOPERIDOL [Suspect]
     Indication: SCHIZOPHRENIA
     Dosage: 5MG - DAILY

REACTIONS (11)
  - SEDATION [None]
  - ABNORMAL BEHAVIOUR [None]
  - PLATELET COUNT INCREASED [None]
  - AGGRESSION [None]
  - PNEUMONIA BACTERIAL [None]
  - DRUG LEVEL INCREASED [None]
  - HEPATIC FUNCTION ABNORMAL [None]
  - SUBSTANCE ABUSE [None]
  - GASTROINTESTINAL DISORDER [None]
  - IRON DEFICIENCY ANAEMIA [None]
  - HELICOBACTER GASTRITIS [None]
